FAERS Safety Report 4796382-1 (Version None)
Quarter: 2005Q4

REPORT INFORMATION
  Report Type: 
  Country: None (occurrence: None)
  Receive Date: 20051007
  Receipt Date: 20050923
  Transmission Date: 20060501
  Serious: Yes (Disabling)
  Sender: FDA-Public Use
  Company Number: GBR-2005-0001819

PATIENT
  Age: 56 Year
  Sex: Male

DRUGS (6)
  1. MXL CAPSULES 60 MG (MORPHINE SULFATE)CR CAPSYLE DAILY [Suspect]
     Indication: CANCER PAIN
     Dosage: 60 MG, BID, ORAL
     Route: 048
     Dates: start: 20050720, end: 20050727
  2. MORPHINE SULFATE [Concomitant]
  3. PARACETAMOL [Concomitant]
  4. ZOPICLONE (ZOPICLONE) [Concomitant]
  5. VITAMIN B COMPLEX CAP [Concomitant]
  6. ORAMORPH SR [Concomitant]

REACTIONS (7)
  - DYSARTHRIA [None]
  - DYSKINESIA [None]
  - FEELING DRUNK [None]
  - MEDICATION ERROR [None]
  - MENTAL IMPAIRMENT [None]
  - SOMNOLENCE [None]
  - WRONG DRUG ADMINISTERED [None]
